FAERS Safety Report 6786018-2 (Version None)
Quarter: 2010Q2

REPORT INFORMATION
  Report Type: 
  Country: None (occurrence: None)
  Receive Date: 20100622
  Receipt Date: 20100622
  Transmission Date: 20101027
  Serious: Yes (Other)
  Sender: FDA-Public Use
  Company Number: None

PATIENT
  Age: 2 Year
  Sex: Male

DRUGS (1)
  1. BANANA BOAT MAXIMUM  BABY SUNBLOCK SPF100 [Suspect]
     Indication: PROPHYLAXIS AGAINST SOLAR RADIATION
     Dates: start: 20100401

REACTIONS (5)
  - APPLICATION SITE REACTION [None]
  - DERMATITIS ATOPIC [None]
  - ECZEMA HERPETICUM [None]
  - IMPETIGO [None]
  - REACTION TO DRUG EXCIPIENTS [None]
